FAERS Safety Report 13411209 (Version 2)
Quarter: 2023Q1

REPORT INFORMATION
  Report Type: Spontaneous
  Country: US (occurrence: US)
  Receive Date: 20170406
  Receipt Date: 20230123
  Transmission Date: 20230418
  Serious: No
  Sender: FDA-Public Use
  Company Number: US-JNJFOC-20170306756

PATIENT
  Sex: Male

DRUGS (4)
  1. RISPERDAL [Suspect]
     Active Substance: RISPERIDONE
     Indication: Psychotic symptom
     Route: 048
     Dates: start: 1997, end: 1997
  2. RISPERDAL [Suspect]
     Active Substance: RISPERIDONE
     Indication: Thinking abnormal
     Dosage: VARYING DOSES AND FREQUENCIES OF 3 TIMES AND 4 TIMES DAILY
     Route: 048
     Dates: start: 2001
  3. RISPERDAL [Suspect]
     Active Substance: RISPERIDONE
     Indication: Paranoia
  4. INVEGA [Suspect]
     Active Substance: PALIPERIDONE
     Indication: Product used for unknown indication
     Route: 048

REACTIONS (4)
  - Gynaecomastia [Not Recovered/Not Resolved]
  - Blood prolactin increased [Unknown]
  - Sedation [Unknown]
  - Off label use [Unknown]

NARRATIVE: CASE EVENT DATE: 20010101
